FAERS Safety Report 10821880 (Version 1)
Quarter: 2015Q1

REPORT INFORMATION
  Report Type: Spontaneous
  Country: US (occurrence: None)
  Receive Date: 20150218
  Receipt Date: 20150218
  Transmission Date: 20150721
  Serious: Yes (Hospitalization)
  Sender: FDA-Public Use
  Company Number: None

PATIENT
  Age: 64 Year
  Sex: Female

DRUGS (1)
  1. LISTERINE ORIGINAL [Suspect]
     Active Substance: EUCALYPTOL\MENTHOL\METHYL SALICYLATE\THYMOL
     Dates: start: 20150109, end: 20150109

REACTIONS (7)
  - Accidental exposure to product [None]
  - Vomiting [None]
  - Balance disorder [None]
  - Hyperhidrosis [None]
  - Dizziness [None]
  - Incorrect route of drug administration [None]
  - Impaired driving ability [None]

NARRATIVE: CASE EVENT DATE: 20150109
